FAERS Safety Report 21905202 (Version 2)
Quarter: 2023Q1

REPORT INFORMATION
  Report Type: Spontaneous
  Country: US (occurrence: US)
  Receive Date: 20230124
  Receipt Date: 20230208
  Transmission Date: 20230418
  Serious: No
  Sender: FDA-Public Use
  Company Number: US-IDORSIA-002743-2022-US

PATIENT
  Sex: Female

DRUGS (3)
  1. QUVIVIQ [Suspect]
     Active Substance: DARIDOREXANT
     Indication: Insomnia
     Dosage: 50 MG, QD
     Route: 048
     Dates: start: 202212, end: 202212
  2. LYRICA [Concomitant]
     Active Substance: PREGABALIN
     Indication: Migraine
  3. CELEBREX [Concomitant]
     Active Substance: CELECOXIB
     Indication: Migraine

REACTIONS (2)
  - Depression [Recovered/Resolved]
  - Insomnia [Recovered/Resolved]
